FAERS Safety Report 8480168-0 (Version None)
Quarter: 2012Q2

REPORT INFORMATION
  Report Type: 
  Country: None (occurrence: None)
  Receive Date: 20120629
  Receipt Date: 20120625
  Transmission Date: 20120825
  Serious: Yes (Hospitalization)
  Sender: FDA-Public Use
  Company Number: GR-MERCK-1206USA04481

PATIENT
  Age: 18 Year
  Sex: Female

DRUGS (4)
  1. MEFENAMIC ACID [Suspect]
     Route: 065
     Dates: start: 20120601
  2. ACETAMINOPHEN [Suspect]
     Route: 065
     Dates: start: 20120601
  3. DROSPIRENONE AND ETHINYL ESTRADIOL [Concomitant]
     Route: 065
  4. MAXALT [Suspect]
     Indication: HEADACHE
     Route: 048
     Dates: start: 20120601

REACTIONS (3)
  - BLOOD CREATINE PHOSPHOKINASE INCREASED [None]
  - DRUG INEFFECTIVE [None]
  - VOMITING [None]
